FAERS Safety Report 7323722-1 (Version None)
Quarter: 2011Q1

REPORT INFORMATION
  Report Type: 
  Country: None (occurrence: None)
  Receive Date: 20110216
  Receipt Date: 20110208
  Transmission Date: 20110831
  Serious: Yes (Hospitalization, Other)
  Sender: FDA-Public Use
  Company Number: ACO_20793_2010

PATIENT
  Age: 45 Year
  Sex: Male
  Weight: 79.8 kg

DRUGS (11)
  1. CYMBALTA [Concomitant]
  2. AMPYRA [Suspect]
     Indication: PRODUCT USED FOR UNKNOWN INDICATION
     Dosage: 10 MG, Q 12 HRS, ORAL
     Route: 048
     Dates: start: 20100401, end: 20101001
  3. OMEPRAZOLE [Concomitant]
  4. TYSABRI [Concomitant]
  5. LYRICA [Concomitant]
  6. ZOLPIDEM [Concomitant]
  7. WELLBUTRIN [Suspect]
     Indication: PRODUCT USED FOR UNKNOWN INDICATION
     Dosage: 75 MG, QD, ORAL
     Route: 048
     Dates: start: 20090624, end: 20101001
  8. PROPRANOLOL [Concomitant]
  9. ROPINIROLE [Concomitant]
  10. BACLOFEN [Concomitant]
  11. AMANTADINE HCL [Concomitant]

REACTIONS (1)
  - GRAND MAL CONVULSION [None]
